FAERS Safety Report 14349549 (Version 1)
Quarter: 2018Q1

REPORT INFORMATION
  Report Type: Spontaneous
  Country: US (occurrence: US)
  Receive Date: 20180104
  Receipt Date: 20180104
  Transmission Date: 20180509
  Serious: Yes (Hospitalization, Other)
  Sender: FDA-Public Use
  Company Number: US-WEST-WARD PHARMACEUTICALS CORP.-US-H14001-17-05216

PATIENT
  Age: 2 Year
  Sex: Male

DRUGS (1)
  1. DIGOXIN. [Suspect]
     Active Substance: DIGOXIN
     Indication: PRODUCT USED FOR UNKNOWN INDICATION
     Route: 048

REACTIONS (9)
  - Atrioventricular block first degree [Recovering/Resolving]
  - Somnolence [Unknown]
  - Supraventricular extrasystoles [Recovering/Resolving]
  - Electrocardiogram T wave amplitude decreased [Recovering/Resolving]
  - Accidental exposure to product by child [Recovered/Resolved]
  - Toxicity to various agents [Recovering/Resolving]
  - Heart rate decreased [Recovering/Resolving]
  - Electrocardiogram ST segment depression [Recovering/Resolving]
  - Vomiting [Unknown]
